FAERS Safety Report 8836708 (Version 2)
Quarter: 2014Q1

REPORT INFORMATION
  Report Type: Spontaneous
  Country: FR (occurrence: None)
  Receive Date: 20121010
  Receipt Date: 20140310
  Transmission Date: 20141002
  Serious: Yes (Death, Life-Threatening, Hospitalization, Disabling)
  Sender: FDA-Public Use
  Company Number: FRA-CLT-2012068

PATIENT
  Age: 2 Year
  Sex: Male

DRUGS (4)
  1. CYSTADANE [Suspect]
     Indication: HOMOCYSTINURIA
     Route: 048
     Dates: start: 20070427, end: 20070505
  2. LEVOCARNIL [Suspect]
     Indication: VITAMIN B12 DEFICIENCY
     Dates: start: 20060331, end: 20090610
  3. FOLINORAL [Suspect]
     Indication: VITAMIN B12 DEFICIENCY
     Dates: start: 20060331, end: 20081006
  4. VITAMIN B12 [Suspect]
     Indication: VITAMIN B12 DEFICIENCY
     Route: 030
     Dates: start: 20060331, end: 20110426

REACTIONS (4)
  - Respiratory distress [None]
  - Pulmonary hypertension [None]
  - Interstitial lung disease [None]
  - Amino acid level increased [None]
